FAERS Safety Report 9415384 (Version 6)
Quarter: 2014Q3

REPORT INFORMATION
  Report Type: Spontaneous
  Country: US (occurrence: US)
  Receive Date: 20130723
  Receipt Date: 20140806
  Transmission Date: 20150326
  Serious: No
  Sender: FDA-Public Use
  Company Number: US-PFIZER INC-2013211202

PATIENT
  Age: 51 Year
  Sex: Female
  Weight: 68.93 kg

DRUGS (12)
  1. FISH OIL [Concomitant]
     Active Substance: FISH OIL
  2. METFORMIN [Concomitant]
     Active Substance: METFORMIN HYDROCHLORIDE
     Indication: TYPE 2 DIABETES MELLITUS
     Dosage: UNK
  3. PRILOSEC [Concomitant]
     Active Substance: OMEPRAZOLE MAGNESIUM
  4. VITAMIN D3 [Concomitant]
     Active Substance: CHOLECALCIFEROL
  5. SUTENT [Suspect]
     Active Substance: SUNITINIB MALATE
     Dosage: 25 MG, 1X/DAY
     Route: 048
     Dates: start: 201309
  6. SUTENT [Suspect]
     Active Substance: SUNITINIB MALATE
     Dosage: 37.5 MG, (STARTER 25 MG AND EVERY THIRD DAY ONLY TAKE 12.5MG)
     Dates: start: 20131201
  7. BIOTIN [Concomitant]
     Active Substance: BIOTIN
  8. SUTENT [Suspect]
     Active Substance: SUNITINIB MALATE
     Indication: PANCREATIC NEUROENDOCRINE TUMOUR
     Dosage: 37.5 MG, UNK
     Route: 048
     Dates: start: 201102, end: 201110
  9. LEVAMIR INSULIN [Concomitant]
     Indication: TYPE 2 DIABETES MELLITUS
     Dosage: UNK
     Dates: start: 201106
  10. BLACK CUMIN OIL [Concomitant]
     Dosage: UNK
  11. LISINOPRIL. [Concomitant]
     Active Substance: LISINOPRIL
  12. PROBIOTICS [Concomitant]
     Active Substance: PROBIOTICS NOS
     Dosage: UNK

REACTIONS (15)
  - Migraine [Recovered/Resolved]
  - Muscle spasms [Unknown]
  - Hypertension [Unknown]
  - Headache [Unknown]
  - Hypoaesthesia [Unknown]
  - Paraesthesia [Unknown]
  - Speech disorder [Unknown]
  - Abdominal pain [Unknown]
  - Diarrhoea [Recovered/Resolved]
  - Pain in extremity [Unknown]
  - Hyperkeratosis [Unknown]
  - Eye disorder [Unknown]
  - Visual impairment [Unknown]
  - Gingival bleeding [Unknown]
  - Blood glucose decreased [Unknown]

NARRATIVE: CASE EVENT DATE: 2012
